FAERS Safety Report 7592721-7 (Version None)
Quarter: 2011Q3

REPORT INFORMATION
  Report Type: 
  Country: None (occurrence: None)
  Receive Date: 20110706
  Receipt Date: 20110623
  Transmission Date: 20111222
  Serious: Yes (Other)
  Sender: FDA-Public Use
  Company Number: US-PFIZER INC-2011145044

PATIENT
  Sex: Female
  Weight: 80 kg

DRUGS (3)
  1. WELLBUTRIN [Suspect]
  2. GEODON [Suspect]
  3. ABILIFY [Suspect]

REACTIONS (2)
  - DRUG HYPERSENSITIVITY [None]
  - CONVULSION [None]
